FAERS Safety Report 7537447 (Version 22)
Quarter: 2014Q3

REPORT INFORMATION
  Report Type: Spontaneous
  Country: US (occurrence: US)
  Receive Date: 20100811
  Receipt Date: 20140806
  Transmission Date: 20150326
  Serious: Yes (Hospitalization, Other)
  Sender: FDA-Public Use
  Company Number: PHEH2010US03510

PATIENT
  Sex: Male

DRUGS (29)
  1. LANTUS [Concomitant]
     Active Substance: INSULIN GLARGINE
  2. ROCEPHIN [Concomitant]
     Active Substance: CEFTRIAXONE SODIUM
     Route: 042
  3. GLYBURIDE. [Concomitant]
     Active Substance: GLYBURIDE
  4. ASPIRINE [Concomitant]
     Active Substance: ASPIRIN
  5. DACARBAZINE. [Concomitant]
     Active Substance: DACARBAZINE
     Dosage: 600 MG, UNK
     Route: 042
  6. VINBLASTINE [Concomitant]
     Active Substance: VINBLASTINE
  7. ACCURETIC [Concomitant]
     Active Substance: HYDROCHLOROTHIAZIDE\QUINAPRIL HYDROCHLORIDE
  8. RADIATION THERAPY [Concomitant]
     Active Substance: RADIATION THERAPY
  9. ARANESP [Concomitant]
     Active Substance: DARBEPOETIN ALFA
     Dosage: 400 UG, QW
  10. DECADRON [Concomitant]
     Active Substance: DEXAMETHASONE
     Dosage: 10 MG, UNK
     Route: 042
  11. ALOXI [Concomitant]
     Active Substance: PALONOSETRON HYDROCHLORIDE
     Dosage: 250 UG, UNK
     Route: 042
  12. ZOMETA [Suspect]
     Active Substance: ZOLEDRONIC ACID
     Indication: BONE DISORDER
     Dosage: 4 MG, MONTHLY
     Route: 042
     Dates: end: 200804
  13. TRICOR [Concomitant]
     Active Substance: FENOFIBRATE
     Dosage: 145 MG, QD
  14. NIASPAN [Concomitant]
     Active Substance: NIACIN
  15. MECLIZINE [Concomitant]
     Active Substance: MECLIZINE\MECLIZINE HYDROCHLORIDE
  16. AMITRIPTYLINE [Concomitant]
     Active Substance: AMITRIPTYLINE
  17. BLEOMYCIN [Concomitant]
     Active Substance: BLEOMYCIN SULFATE
     Route: 042
  18. AVANDIA [Concomitant]
     Active Substance: ROSIGLITAZONE MALEATE
  19. OMEPRAZOLE. [Concomitant]
     Active Substance: OMEPRAZOLE
  20. CHEMOTHERAPEUTICS [Concomitant]
     Active Substance: UNSPECIFIED INGREDIENT
  21. PENICILLIN [Concomitant]
     Active Substance: PENICILLIN
  22. MOTRIN [Concomitant]
     Active Substance: IBUPROFEN
  23. ALLOPURINOL. [Concomitant]
     Active Substance: ALLOPURINOL
  24. ADRIAMYCIN [Concomitant]
     Active Substance: DOXORUBICIN HYDROCHLORIDE
     Dosage: 48 MG, UNK
     Route: 042
  25. METFORMIN [Concomitant]
     Active Substance: METFORMIN HYDROCHLORIDE
  26. WARFARIN [Concomitant]
     Active Substance: WARFARIN
  27. METOPROLOL [Concomitant]
     Active Substance: METOPROLOL
  28. GEMFIBROZIL. [Concomitant]
     Active Substance: GEMFIBROZIL
  29. NOVOLOG [Concomitant]
     Active Substance: INSULIN ASPART

REACTIONS (127)
  - Hypotension [Unknown]
  - Metastases to lung [Unknown]
  - Neoplasm malignant [Unknown]
  - Pain [Recovered/Resolved]
  - Poor dental condition [Recovered/Resolved]
  - Atelectasis [Unknown]
  - Splenomegaly [Unknown]
  - Lymphadenopathy mediastinal [Unknown]
  - VIIth nerve paralysis [Unknown]
  - Arthralgia [Unknown]
  - Gastrointestinal motility disorder [Unknown]
  - Arthritis [Unknown]
  - Oedema peripheral [Unknown]
  - Rotator cuff syndrome [Unknown]
  - Testicular pain [Unknown]
  - Dizziness [Unknown]
  - Flank pain [Unknown]
  - Neuropathy peripheral [Unknown]
  - Heart rate irregular [Unknown]
  - Osteolysis [Unknown]
  - Overdose [Unknown]
  - Haemorrhage urinary tract [Unknown]
  - Haematuria [Unknown]
  - Intervertebral disc space narrowing [Unknown]
  - Dyslipidaemia [Unknown]
  - Pain in extremity [Unknown]
  - Muscle strain [Unknown]
  - Testicular failure [Unknown]
  - Nail growth abnormal [Unknown]
  - Renal cyst [Unknown]
  - Intermittent claudication [Unknown]
  - Aortic valve incompetence [Unknown]
  - Left ventricular dysfunction [Unknown]
  - Lymphoma [Unknown]
  - Intervertebral disc degeneration [Unknown]
  - Sleep apnoea syndrome [Unknown]
  - Partner stress [Recovered/Resolved]
  - Nephrolithiasis [Unknown]
  - Dysuria [Unknown]
  - Dehydration [Unknown]
  - Abdominal pain [Unknown]
  - Central nervous system lesion [Unknown]
  - Nail disorder [Unknown]
  - Renal disorder [Unknown]
  - Lumbar spinal stenosis [Unknown]
  - Infection [Recovered/Resolved]
  - Gingivitis [Unknown]
  - Urinary tract infection [Unknown]
  - Fall [Unknown]
  - Prostatic calcification [Unknown]
  - Bone density abnormal [Unknown]
  - Renal pain [Unknown]
  - Blood triglycerides increased [Unknown]
  - Excessive skin [Unknown]
  - Spinal osteoarthritis [Unknown]
  - Asthenia [Unknown]
  - Sepsis [Unknown]
  - Periodontal disease [Recovered/Resolved]
  - Hepatomegaly [Unknown]
  - Testicular mass [Unknown]
  - Presyncope [Unknown]
  - Musculoskeletal chest pain [Unknown]
  - Weight increased [Unknown]
  - Bladder disorder [Unknown]
  - Bone deformity [Unknown]
  - Phlebolith [Unknown]
  - Groin pain [Unknown]
  - Pyelonephritis [Unknown]
  - Bone pain [Unknown]
  - Libido decreased [Unknown]
  - Arrhythmia [Unknown]
  - Colon adenoma [Unknown]
  - Diarrhoea [Unknown]
  - Radiculopathy [Unknown]
  - Anaemia [Unknown]
  - Tricuspid valve incompetence [Unknown]
  - Polydipsia [Unknown]
  - Urethritis [Unknown]
  - Diverticulum intestinal [Unknown]
  - Nasal ulcer [Unknown]
  - Hypoaesthesia [Unknown]
  - Back pain [Unknown]
  - Cerebral calcification [Unknown]
  - Bone lesion [Unknown]
  - Diabetic neuropathy [Unknown]
  - Constipation [Unknown]
  - Disability [Unknown]
  - Nail discolouration [Unknown]
  - Arteriosclerosis [Unknown]
  - Coronary artery disease [Unknown]
  - QRS axis abnormal [Unknown]
  - Hodgkin^s disease stage IV [Unknown]
  - Pneumonia [Unknown]
  - Hyponatraemia [Unknown]
  - Prostatomegaly [Unknown]
  - Prostatitis [Unknown]
  - Left ventricular hypertrophy [Unknown]
  - Metastases to spine [Unknown]
  - Hyperlipidaemia [Unknown]
  - Metastases to bone [Unknown]
  - Bronchitis [Unknown]
  - Dyspnoea [Unknown]
  - Scoliosis [Unknown]
  - Osteonecrosis [Unknown]
  - Vertigo [Unknown]
  - Joint swelling [Unknown]
  - Hernia [Unknown]
  - Large intestine polyp [Unknown]
  - Palpitations [Unknown]
  - Osteonecrosis of jaw [Recovered/Resolved]
  - Deformity [Recovered/Resolved]
  - Urethral stenosis [Unknown]
  - Upper respiratory tract infection [Recovered/Resolved]
  - Atrial fibrillation [Unknown]
  - Sacralisation [Unknown]
  - Chest discomfort [Unknown]
  - Supraventricular tachycardia [Unknown]
  - Metabolic syndrome [Unknown]
  - Thrombocytopenia [Unknown]
  - Weight decreased [Unknown]
  - Muscle spasms [Unknown]
  - Swelling [Unknown]
  - Osteosclerosis [Unknown]
  - Osteoarthritis [Unknown]
  - Tobacco abuse [Unknown]
  - Paraesthesia [Unknown]
  - Bundle branch block [Unknown]
